FAERS Safety Report 15822466 (Version 2)
Quarter: 2019Q1

REPORT INFORMATION
  Report Type: Spontaneous
  Country: PL (occurrence: PL)
  Receive Date: 20190114
  Receipt Date: 20190116
  Transmission Date: 20190417
  Serious: Yes (Hospitalization, Other)
  Sender: FDA-Public Use
  Company Number: PL-BAYER-2019-009576

PATIENT
  Age: 70 Year
  Sex: Male

DRUGS (4)
  1. ABIRATERONE ACETATE. [Suspect]
     Active Substance: ABIRATERONE ACETATE
     Indication: PROSTATE CANCER
     Dosage: UNK
     Route: 048
  2. CLOPIDOGREL BISULFATE. [Suspect]
     Active Substance: CLOPIDOGREL BISULFATE
     Indication: ANTIPLATELET THERAPY
     Dosage: UNK
  3. DALTEPARIN [Suspect]
     Active Substance: DALTEPARIN
     Indication: MYOCARDIAL INFARCTION
     Dosage: 5000 DF, UNK
  4. ACETYLSALICYLIC ACID({=100 MG) [Suspect]
     Active Substance: ASPIRIN
     Indication: ANTIPLATELET THERAPY
     Dosage: 300 MG, UNK

REACTIONS (7)
  - Electrocardiogram abnormal [Unknown]
  - Haemodynamic test abnormal [Unknown]
  - Fractional flow reserve [Unknown]
  - Cardiac function test abnormal [Unknown]
  - Drug ineffective [Unknown]
  - Chest pain [Unknown]
  - Haemorrhage urinary tract [Unknown]
